FAERS Safety Report 18668961 (Version 2)
Quarter: 2022Q1

REPORT INFORMATION
  Report Type: Other
  Country: CA (occurrence: CA)
  Receive Date: 20201228
  Receipt Date: 20220121
  Transmission Date: 20220424
  Serious: Yes (Hospitalization, Other)
  Sender: FDA-Public Use
  Company Number: CA-ASTELLAS-2020US045447

PATIENT
  Age: 22 Year
  Sex: Female

DRUGS (7)
  1. TACROLIMUS [Interacting]
     Active Substance: TACROLIMUS
     Indication: Renal transplant
     Route: 048
  2. TACROLIMUS [Interacting]
     Active Substance: TACROLIMUS
     Route: 048
  3. TACROLIMUS [Interacting]
     Active Substance: TACROLIMUS
     Route: 048
  4. ERYTHROMYCIN [Interacting]
     Active Substance: ERYTHROMYCIN
     Indication: Premature labour
     Dosage: UNK UNK, UNKNOWN FREQ.
     Route: 065
  5. PREDNISONE [Concomitant]
     Active Substance: PREDNISONE
     Indication: Renal transplant
     Route: 065
  6. PREDNISONE [Concomitant]
     Active Substance: PREDNISONE
     Route: 065
  7. AZATHIOPRINE [Concomitant]
     Active Substance: AZATHIOPRINE
     Indication: Renal transplant
     Dosage: UNK UNK, UNKNOWN FREQ.
     Route: 065

REACTIONS (10)
  - Pre-eclampsia [Unknown]
  - Immunosuppressant drug level increased [Unknown]
  - Thrombotic microangiopathy [Recovering/Resolving]
  - Acute kidney injury [Recovering/Resolving]
  - Premature delivery [Unknown]
  - Immunosuppressant drug level decreased [Recovered/Resolved]
  - Drug interaction [Unknown]
  - Maternal exposure during pregnancy [Unknown]
  - Toxicity to various agents [Unknown]
  - Thrombocytopenia [Unknown]
